FAERS Safety Report 25225078 (Version 5)
Quarter: 2025Q2

REPORT INFORMATION
  Report Type: Spontaneous
  Country: PL (occurrence: PL)
  Receive Date: 20250422
  Receipt Date: 20250605
  Transmission Date: 20250717
  Serious: Yes (Other)
  Sender: AUROBINDO
  Company Number: PL-LESVI-2025001214

PATIENT
  Age: 84 Year
  Sex: Female

DRUGS (34)
  1. PREGABALIN [Suspect]
     Active Substance: PREGABALIN
     Indication: Anxiety
     Dosage: 25 MILLIGRAM, EVERY OTHER DAY (2 ? 25 MG IN THE MORNING AND AT NIGHT)
     Route: 048
  2. PREGABALIN [Suspect]
     Active Substance: PREGABALIN
     Indication: Depression
  3. PREGABALIN [Suspect]
     Active Substance: PREGABALIN
     Indication: Analgesic therapy
  4. ACETAMINOPHEN [Suspect]
     Active Substance: ACETAMINOPHEN
     Indication: Pain management
     Route: 065
  5. ACETAMINOPHEN [Suspect]
     Active Substance: ACETAMINOPHEN
     Indication: Analgesic therapy
  6. ACETAMINOPHEN [Suspect]
     Active Substance: ACETAMINOPHEN
     Indication: Pain
  7. TRAMADOL [Suspect]
     Active Substance: TRAMADOL
     Indication: Pain management
     Route: 065
  8. TRAMADOL [Suspect]
     Active Substance: TRAMADOL
     Indication: Analgesic therapy
  9. IBUPROFEN [Suspect]
     Active Substance: IBUPROFEN
     Indication: Pain management
     Route: 048
  10. IBUPROFEN [Suspect]
     Active Substance: IBUPROFEN
     Indication: Analgesic therapy
  11. IBUPROFEN [Suspect]
     Active Substance: IBUPROFEN
     Indication: Pain
  12. MIRTAZAPINE [Suspect]
     Active Substance: MIRTAZAPINE
     Indication: Anxiety
     Route: 048
  13. MIRTAZAPINE [Suspect]
     Active Substance: MIRTAZAPINE
     Indication: Depression
  14. KETOPROFEN [Suspect]
     Active Substance: KETOPROFEN
     Indication: Arthralgia
     Route: 061
  15. KETOPROFEN [Suspect]
     Active Substance: KETOPROFEN
     Indication: Pain management
  16. KETOPROFEN [Suspect]
     Active Substance: KETOPROFEN
     Indication: Analgesic therapy
  17. KETOPROFEN [Suspect]
     Active Substance: KETOPROFEN
     Indication: Pain
  18. NIMESULIDE [Suspect]
     Active Substance: NIMESULIDE
     Indication: Analgesic therapy
     Route: 065
  19. NIMESULIDE [Suspect]
     Active Substance: NIMESULIDE
     Indication: Pain management
  20. NIMESULIDE [Suspect]
     Active Substance: NIMESULIDE
     Indication: Pain
  21. ACETAMINOPHEN\TRAMADOL [Suspect]
     Active Substance: ACETAMINOPHEN\TRAMADOL
     Indication: Pain management
     Dosage: 4 DOSAGE FORM, ONCE A DAY (4 DOSAGE FORM, DAILY (2600 MG/300 MG (650 MG/75 MG, 4 IN 1D)
     Route: 048
  22. ACETAMINOPHEN\TRAMADOL [Suspect]
     Active Substance: ACETAMINOPHEN\TRAMADOL
     Indication: Analgesic therapy
  23. METHOTREXATE [Suspect]
     Active Substance: METHOTREXATE
     Indication: Rheumatoid arthritis
     Dosage: 15 MILLIGRAM, EVERY WEEK (15 MG 1 ? WEEKLY)
     Route: 058
  24. METHOTREXATE [Suspect]
     Active Substance: METHOTREXATE
     Indication: Pain
  25. METHYLPREDNISOLONE [Suspect]
     Active Substance: METHYLPREDNISOLONE
     Indication: Rheumatoid arthritis
     Dosage: 4 MILLIGRAM, ONCE A DAY (4 MG 1 ? 1 TABL IN THE MORNING (LONG-TERM THERAPY)
     Route: 048
  26. METHYLPREDNISOLONE [Suspect]
     Active Substance: METHYLPREDNISOLONE
     Indication: Pain
  27. FOLIC ACID [Concomitant]
     Active Substance: FOLIC ACID
     Indication: Supplementation therapy
     Dosage: 15 MILLIGRAM, EVERY WEEK
     Route: 048
  28. TAPENTADOL [Concomitant]
     Active Substance: TAPENTADOL
     Indication: Arthralgia
     Dosage: 50 MILLIGRAM, TWO TIMES A DAY (INITIALLY 50 MG EVERY 12 H ORALLY,)
     Route: 048
  29. TAPENTADOL [Concomitant]
     Active Substance: TAPENTADOL
     Dosage: 100 MILLIGRAM, TWO TIMES A DAY (AND THEN AFTER 3 DAYS 100 MG EVERY 12 H)
     Route: 048
  30. VITAMIN B12 [Concomitant]
     Active Substance: CYANOCOBALAMIN
     Indication: Vitamin B12 deficiency
     Route: 030
  31. VITAMIN D3 [Concomitant]
     Active Substance: CHOLECALCIFEROL
     Indication: Vitamin D deficiency
     Route: 048
  32. HERBAL NOS [Concomitant]
     Active Substance: HERBALS
     Indication: Product used for unknown indication
     Route: 065
  33. GLUCOSAMINE [Concomitant]
     Active Substance: GLUCOSAMINE
     Indication: Product used for unknown indication
     Route: 065
  34. CHONDROITIN [Concomitant]
     Active Substance: CHONDROITIN
     Indication: Product used for unknown indication
     Route: 065

REACTIONS (9)
  - Abdominal pain upper [Unknown]
  - Dyspepsia [Unknown]
  - Dizziness [Unknown]
  - Constipation [Unknown]
  - Nausea [Recovered/Resolved]
  - Therapeutic product effect incomplete [Unknown]
  - Vomiting [Recovered/Resolved]
  - Drug ineffective [Recovered/Resolved]
  - Product use issue [Recovered/Resolved]
